FAERS Safety Report 7258560-1 (Version None)
Quarter: 2011Q1

REPORT INFORMATION
  Report Type: 
  Country: None (occurrence: None)
  Receive Date: 20110129
  Receipt Date: 20100502
  Transmission Date: 20110831
  Serious: No
  Sender: FDA-Public Use
  Company Number: US-ABBOTT-08P-163-0470869-00

PATIENT
  Sex: Male
  Weight: 87.622 kg

DRUGS (44)
  1. HUMIRA [Suspect]
     Indication: CROHN'S DISEASE
     Dates: start: 20080627, end: 20080627
  2. MERCAPTOPURINE [Concomitant]
     Indication: PRODUCT USED FOR UNKNOWN INDICATION
  3. SEROQUEL [Concomitant]
     Indication: INSOMNIA
     Dosage: 2 @ 1 HOUR BEFORE BEDTIME (50MG)
  4. SALINE SOLUTION SPRAY [Concomitant]
     Indication: PRODUCT USED FOR UNKNOWN INDICATION
     Dosage: GENERALLY BOTH NOSTRILS 2X AT LEAST BID
  5. HUMIRA [Suspect]
     Dosage: FOR NINE WEEKS AFTER QOW
     Dates: start: 20080725
  6. WELLBUTRIN [Concomitant]
     Indication: PRODUCT USED FOR UNKNOWN INDICATION
     Dosage: IN THE AM + 6 PM
  7. ALLEGRA [Concomitant]
     Indication: PRODUCT USED FOR UNKNOWN INDICATION
     Dosage: GENERALLY FOR 10 DAYS REGIMEN
  8. SINGULAIR [Concomitant]
     Indication: PRODUCT USED FOR UNKNOWN INDICATION
     Dosage: IN AFTERNOON
  9. QUININE [Concomitant]
     Indication: MUSCLE SPASMS
     Dosage: MAXIMUM OF 1 EVERY 12 HOUR
  10. COUMADIN [Concomitant]
     Dates: start: 20080418, end: 20080421
  11. TRICOR [Concomitant]
     Indication: BLOOD TRIGLYCERIDES
     Dosage: IN THE AM
  12. MERCAPTOPURINE [Concomitant]
     Dates: start: 20080421, end: 20080429
  13. MERCAPTOPURINE [Concomitant]
     Dates: end: 20080218
  14. NEXIUM [Concomitant]
     Indication: PRODUCT USED FOR UNKNOWN INDICATION
     Dosage: IN AM
  15. DEPAKOTE [Concomitant]
     Indication: PRODUCT USED FOR UNKNOWN INDICATION
     Dosage: 2 AM; 1 AFTERNOON@ 3P @ 10:30 OR BEDTIME
  16. CORTIZONE [Concomitant]
     Indication: RASH
     Dosage: 2 1/2% (UNIT DOSE)
  17. COUMADIN [Concomitant]
     Indication: PRODUCT USED FOR UNKNOWN INDICATION
     Dosage: LOWER DOSE THAN 5MG BID
     Dates: start: 20080425
  18. CIPRO [Concomitant]
     Indication: PRODUCT USED FOR UNKNOWN INDICATION
     Dosage: TAKEN 2 HOUR AFTER BREAKFAST OR DAIRY PRODUCTS
  19. GAS-X [Concomitant]
     Indication: GASTROINTESTINAL SOUNDS ABNORMAL
     Dosage: 125MG OR } (UNIT DOSE) 2 OR 3
  20. B I-PAP MACHINE [Concomitant]
     Indication: SLEEP APNOEA SYNDROME
     Dosage: NIGHTLY
  21. WALGREEN NO ASPIRIN EXTRA STRENGTH [Concomitant]
     Indication: NECK PAIN
  22. ZEASORB AF [Concomitant]
     Indication: HYPERHIDROSIS
  23. ZYRTEC [Concomitant]
     Indication: PRODUCT USED FOR UNKNOWN INDICATION
     Dosage: GENERALLY 10 DAY REGIME
  24. COUMADIN [Concomitant]
     Dosage: ADJUSTED WEEKLY/BI-WEEKLY ABOUT 24MG
  25. SOTALOL [Concomitant]
     Indication: PRODUCT USED FOR UNKNOWN INDICATION
  26. AZULFIDINE [Concomitant]
     Indication: PRODUCT USED FOR UNKNOWN INDICATION
     Dosage: 500 MG (UNIT DOSE)
  27. LOPERAMIDE [Concomitant]
     Indication: DIARRHOEA
     Dosage: 1-2 (UNIT DOSE)
  28. MERCAPTOPURINE [Concomitant]
     Dates: start: 20080218, end: 20080421
  29. NORITATE [Concomitant]
     Indication: ROSACEA
     Dosage: 1% (UNIT DOSE)
  30. PROVENTIL-HFA [Concomitant]
     Indication: PRODUCT USED FOR UNKNOWN INDICATION
     Dosage: 2 PUFFS PRIOR TO SINGING/EXERCISING
  31. ATIVAN [Concomitant]
     Indication: PRODUCT USED FOR UNKNOWN INDICATION
     Dosage: IN LIEU OF AMBIEN WHEN NEEDED
  32. KETOCONAZOLE [Concomitant]
     Indication: PRODUCT USED FOR UNKNOWN INDICATION
     Dosage: 2% IN LIEU OF ZEASORB AREA IN LIEU OF ZEASORB
  33. PROZAC [Concomitant]
     Indication: PRODUCT USED FOR UNKNOWN INDICATION
     Dosage: IN AM
  34. PROAIR HFA [Concomitant]
     Indication: PRODUCT USED FOR UNKNOWN INDICATION
     Dosage: 2 PUFFS BEFORE SINGING OR EXERCISE
  35. XALATAN [Concomitant]
     Indication: INTRAOCULAR PRESSURE TEST
     Dosage: 1 DROP IN EACH EYE
  36. BREVOXYL-8 [Concomitant]
     Indication: ACNE
     Dosage: CREAMY WASH BEFORE BEDTIME
  37. HUMIRA [Suspect]
     Dates: start: 20080711, end: 20080711
  38. CRESTOR [Concomitant]
     Indication: PRODUCT USED FOR UNKNOWN INDICATION
  39. AMBIEN [Concomitant]
     Indication: PRODUCT USED FOR UNKNOWN INDICATION
     Dosage: IF SEROQUEL NOT WORK + CAN SLEEP 7OR }HRS
  40. BECONASE AQ [Concomitant]
     Indication: PRODUCT USED FOR UNKNOWN INDICATION
     Dosage: 2 SPRAYS BOTH NOSTRIL IN PM
  41. WALGREEN NO ASPIRIN EXTRA STRENGTH [Concomitant]
     Indication: BACK PAIN
     Dosage: 500 MG (UNIT DOSE)
  42. CLINDAMYCIN [Concomitant]
     Indication: ACNE
     Dosage: 1 % (UNIT DOSE) EVENING
  43. ASMANEX TWISTHALER [Concomitant]
     Indication: PRODUCT USED FOR UNKNOWN INDICATION
     Dosage: 2 INHALES DAILY IN AM
  44. LIDODERM [Concomitant]
     Indication: ARTHRALGIA
     Dosage: 1%

REACTIONS (4)
  - PARAESTHESIA [None]
  - OROPHARYNGEAL PAIN [None]
  - INJECTION SITE PAIN [None]
  - WEIGHT DECREASED [None]
